FAERS Safety Report 9033540 (Version 1)
Quarter: 2013Q1

REPORT INFORMATION
  Report Type: Spontaneous
  Country: US (occurrence: US)
  Receive Date: 20130128
  Receipt Date: 20130128
  Transmission Date: 20140127
  Serious: No
  Sender: FDA-Public Use
  Company Number: US-MYLANLABS-2012S1020720

PATIENT
  Age: 67 Year
  Sex: Female
  Weight: 54.43 kg

DRUGS (6)
  1. BUPROPION HYDROCHLORIDE EXTENDED RELEASE (XL) [Suspect]
     Indication: ESSENTIAL TREMOR
     Route: 048
     Dates: start: 201206, end: 201209
  2. BUPROPION HYDROCHLORIDE EXTENDED RELEASE (XL) [Suspect]
     Indication: DYSTONIA
     Route: 048
     Dates: start: 201206, end: 201209
  3. BUPROPION HYDROCHLORIDE EXTENDED RELEASE (XL) [Suspect]
     Indication: DEPRESSION
     Route: 048
     Dates: start: 201206, end: 201209
  4. KLONOPIN [Concomitant]
     Indication: ANXIETY
  5. BACLOFEN [Concomitant]
     Indication: DYSTONIA
  6. PROPAFENONE [Concomitant]
     Indication: SUPRAVENTRICULAR TACHYCARDIA

REACTIONS (3)
  - Drug ineffective [Recovered/Resolved]
  - Depressed mood [Recovered/Resolved]
  - Irritability [Recovered/Resolved]
